FAERS Safety Report 25287640 (Version 2)
Quarter: 2025Q2

REPORT INFORMATION
  Report Type: Spontaneous
  Country: US (occurrence: US)
  Receive Date: 20250509
  Receipt Date: 20250528
  Transmission Date: 20250717
  Serious: Yes (Hospitalization, Other)
  Sender: HIKMA
  Company Number: US-HIKMA PHARMACEUTICALS USA INC.-US-H14001-25-03936

PATIENT
  Age: 73 Year
  Sex: Male
  Weight: 74.8 kg

DRUGS (3)
  1. PEMBROLIZUMAB [Suspect]
     Active Substance: PEMBROLIZUMAB
     Indication: Squamous cell carcinoma of head and neck
     Route: 042
     Dates: start: 20250108, end: 20250312
  2. PREDNISONE [Suspect]
     Active Substance: PREDNISONE
     Indication: Pneumonitis
     Dosage: 60 MILLIGRAM, QD
     Route: 065
     Dates: start: 20250204, end: 20250427
  3. SGN-PDL1V [Suspect]
     Active Substance: SGN-PDL1V
     Indication: Squamous cell carcinoma of head and neck
     Route: 042
     Dates: start: 20250108, end: 20250312

REACTIONS (6)
  - Pulmonary embolism [Not Recovered/Not Resolved]
  - Acute myocardial infarction [Unknown]
  - Leukocytosis [Unknown]
  - Troponin increased [Unknown]
  - Pulmonary oedema [Unknown]
  - Pneumonia [Unknown]

NARRATIVE: CASE EVENT DATE: 20250422
